FAERS Safety Report 20815938 (Version 1)
Quarter: 2022Q2

REPORT INFORMATION
  Report Type: Spontaneous
  Country: US (occurrence: US)
  Receive Date: 20220511
  Receipt Date: 20220511
  Transmission Date: 20220720
  Serious: No
  Sender: FDA-Public Use
  Company Number: US-PFIZER INC-2019551275

PATIENT
  Age: 25 Year
  Sex: Female

DRUGS (2)
  1. XELJANZ [Suspect]
     Active Substance: TOFACITINIB CITRATE
     Indication: Autoimmune disorder
     Dosage: UNK
  2. XELJANZ [Suspect]
     Active Substance: TOFACITINIB CITRATE
     Indication: Alopecia
     Dosage: UNK, DAILY (HALF TABLET, DAILY)

REACTIONS (3)
  - Off label use [Unknown]
  - Drug effective for unapproved indication [Unknown]
  - Alopecia [Unknown]
